FAERS Safety Report 15765955 (Version 1)
Quarter: 2018Q4

REPORT INFORMATION
  Report Type: Spontaneous
  Country: IT (occurrence: IT)
  Receive Date: 20181227
  Receipt Date: 20181227
  Transmission Date: 20190205
  Serious: Yes (Hospitalization)
  Sender: FDA-Public Use
  Company Number: IT-ASTRAZENECA-2018SF68515

PATIENT
  Age: 18 Year
  Sex: Male

DRUGS (5)
  1. ARCOXIA [Suspect]
     Active Substance: ETORICOXIB
     Route: 048
  2. NEXIUM [Suspect]
     Active Substance: ESOMEPRAZOLE MAGNESIUM
     Route: 048
  3. MOMENT [Suspect]
     Active Substance: IBUPROFEN
     Route: 048
  4. TACHIPIRINA [Suspect]
     Active Substance: ACETAMINOPHEN
     Route: 048
  5. VERTISERC [Suspect]
     Active Substance: BETAHISTINE HYDROCHLORIDE
     Route: 048

REACTIONS (3)
  - Toxicity to various agents [Unknown]
  - Vomiting [Unknown]
  - Somnolence [Unknown]

NARRATIVE: CASE EVENT DATE: 20181205
